FAERS Safety Report 16557141 (Version 2)
Quarter: 2019Q3

REPORT INFORMATION
  Report Type: Spontaneous
  Country: US (occurrence: US)
  Receive Date: 20190711
  Receipt Date: 20190712
  Transmission Date: 20191004
  Serious: Yes (Hospitalization)
  Sender: FDA-Public Use
  Company Number: US-PFIZER INC-2019292222

PATIENT
  Age: 60 Year
  Sex: Female

DRUGS (1)
  1. INLYTA [Suspect]
     Active Substance: AXITINIB
     Indication: EAR NEOPLASM MALIGNANT
     Dosage: 5 MG, UNK

REACTIONS (8)
  - Product use in unapproved indication [Unknown]
  - Neoplasm progression [Unknown]
  - Renal mass [Unknown]
  - Nausea [Unknown]
  - Abdominal pain upper [Unknown]
  - Vomiting [Unknown]
  - Haematuria [Unknown]
  - Off label use [Unknown]
